FAERS Safety Report 9736662 (Version 1)
Quarter: 2013Q4

REPORT INFORMATION
  Report Type: Spontaneous
  Country: US (occurrence: US)
  Receive Date: 20131206
  Receipt Date: 20131206
  Transmission Date: 20140711
  Serious: No
  Sender: FDA-Public Use
  Company Number: US-GILEAD-2009-0022842

PATIENT
  Sex: Female
  Weight: 72.57 kg

DRUGS (11)
  1. LETAIRIS [Suspect]
     Indication: PULMONARY ARTERIAL HYPERTENSION
     Route: 048
     Dates: start: 20071224
  2. COUMADIN [Concomitant]
  3. OXYGEN [Concomitant]
  4. ALDACTONE [Concomitant]
  5. ATACAND [Concomitant]
  6. LANOXIN [Concomitant]
  7. LIPITOR [Concomitant]
  8. ACIPHEX [Concomitant]
  9. CALCIUM [Concomitant]
  10. VITAMIN D [Concomitant]
  11. DAILY MULTIVITAMIN [Concomitant]

REACTIONS (1)
  - Oedema peripheral [Unknown]
